FAERS Safety Report 16571063 (Version 1)
Quarter: 2019Q3

REPORT INFORMATION
  Report Type: Spontaneous
  Country: US (occurrence: US)
  Receive Date: 20190531
  Receipt Date: 20190531
  Transmission Date: 20191004
  Serious: No
  Sender: FDA-Public Use
  Company Number: None

PATIENT
  Age: 6 Year
  Sex: Female

DRUGS (2)
  1. ORKAMBI [Suspect]
     Active Substance: IVACAFTOR\LUMACAFTOR
     Dosage: ?          OTHER FREQUENCY:Q 12 H;?
     Route: 048
     Dates: start: 20190227
  2. PULMOZYME [Suspect]
     Active Substance: DORNASE ALFA
     Dates: start: 20180913

REACTIONS (2)
  - Lung infection [None]
  - Pseudomonas infection [None]

NARRATIVE: CASE EVENT DATE: 20190529
